FAERS Safety Report 17696168 (Version 2)
Quarter: 2020Q4

REPORT INFORMATION
  Report Type: Spontaneous
  Country: US (occurrence: US)
  Receive Date: 20200423
  Receipt Date: 20201025
  Transmission Date: 20210113
  Serious: Yes (Other)
  Sender: FDA-Public Use
  Company Number: US-NAPPMUNDI-USA-2020-0151133

PATIENT
  Sex: Male

DRUGS (1)
  1. OXYCONTIN [Suspect]
     Active Substance: OXYCODONE HYDROCHLORIDE
     Indication: PRODUCT USED FOR UNKNOWN INDICATION
     Dosage: UNK
     Route: 048

REACTIONS (11)
  - Apraxia [Unknown]
  - Emotional poverty [Unknown]
  - Nervousness [Unknown]
  - Unevaluable event [Unknown]
  - Personality change [Unknown]
  - Hyperhidrosis [Unknown]
  - Drug dependence [Recovered/Resolved]
  - Amnesia [Unknown]
  - Drug withdrawal syndrome [Unknown]
  - Hypersomnia [Unknown]
  - Myoclonus [Unknown]
